FAERS Safety Report 5267675-9 (Version None)
Quarter: 2007Q1

REPORT INFORMATION
  Report Type: 
  Country: None (occurrence: None)
  Receive Date: 20070316
  Receipt Date: 20070304
  Transmission Date: 20070707
  Serious: Yes (Life-Threatening, Other)
  Sender: FDA-Public Use
  Company Number: GB-PFIZER INC-2005076465

PATIENT
  Age: 23 Year
  Sex: Male
  Weight: 70 kg

DRUGS (7)
  1. LYRICA [Suspect]
     Indication: EPILEPSY
     Route: 048
  2. OMEPRAZOLE [Concomitant]
     Indication: GASTROOESOPHAGEAL REFLUX DISEASE
     Route: 048
  3. TELFAST [Concomitant]
     Indication: HYPERSENSITIVITY
     Route: 048
  4. ATARAX [Concomitant]
     Route: 048
  5. PROPRANOLOL [Concomitant]
     Indication: TREMOR
     Route: 048
  6. LAMICTAL [Concomitant]
     Indication: EPILEPSY
     Route: 048
  7. ANTIDEPRESSANTS [Concomitant]

REACTIONS (5)
  - AFFECTIVE DISORDER [None]
  - DEPRESSION [None]
  - MULTI-ORGAN FAILURE [None]
  - OVERDOSE [None]
  - SUICIDE ATTEMPT [None]
